FAERS Safety Report 5397733-X (Version None)
Quarter: 2007Q3

REPORT INFORMATION
  Report Type: 
  Country: None (occurrence: None)
  Receive Date: 20070723
  Receipt Date: 20070706
  Transmission Date: 20080115
  Serious: Yes (Disabling)
  Sender: FDA-Public Use
  Company Number: PHBS2006JP19946

PATIENT
  Age: 54 Year
  Sex: Male

DRUGS (2)
  1. VISUDYNE [Suspect]
     Indication: MACULAR DEGENERATION
     Dates: start: 20051109, end: 20051109
  2. VISUDYNE [Suspect]
     Indication: MACULAR DEGENERATION
     Dates: start: 20050708, end: 20050708

REACTIONS (6)
  - CHORIORETINOPATHY [None]
  - MACULOPATHY [None]
  - METAMORPHOPSIA [None]
  - RETINAL PIGMENT EPITHELIOPATHY [None]
  - VENOUS OCCLUSION [None]
  - VISUAL ACUITY REDUCED [None]
